FAERS Safety Report 6906630-7 (Version None)
Quarter: 2010Q3

REPORT INFORMATION
  Report Type: 
  Country: None (occurrence: None)
  Receive Date: 20100708
  Receipt Date: 20090721
  Transmission Date: 20110219
  Serious: Yes (Other)
  Sender: FDA-Public Use
  Company Number: 2008056557

PATIENT
  Age: 55 Year
  Sex: Female
  Weight: 68 kg

DRUGS (16)
  1. CHANTIX [Suspect]
     Indication: NICOTINE DEPENDENCE
     Dosage: 1 MG, 1X/DAY, ORAL; ORAL
     Route: 048
     Dates: start: 20080608, end: 20081204
  2. CHANTIX [Suspect]
     Indication: SMOKING CESSATION THERAPY
     Dosage: 1 MG, 1X/DAY, ORAL; ORAL
     Route: 048
     Dates: start: 20080608, end: 20081204
  3. CHANTIX [Suspect]
     Indication: NICOTINE DEPENDENCE
     Dosage: 1 MG, 1X/DAY, ORAL; ORAL
     Route: 048
     Dates: start: 20090626
  4. CHANTIX [Suspect]
     Indication: SMOKING CESSATION THERAPY
     Dosage: 1 MG, 1X/DAY, ORAL; ORAL
     Route: 048
     Dates: start: 20090626
  5. PREDNISONE [Suspect]
     Indication: COLITIS ULCERATIVE
  6. ASACOL [Concomitant]
  7. VALIUM [Concomitant]
  8. GEODON [Concomitant]
  9. ACTONEL [Concomitant]
  10. CALCIUM (CALCIUM) [Concomitant]
  11. SYNTHROID [Concomitant]
  12. MULTIVITAMINS (ASCORBIC ACID, ERGOCALCIFEROL, FOLIC ACID, NICOTINAMIDE [Concomitant]
  13. PROVIGIL [Concomitant]
  14. LAMICTAL [Concomitant]
  15. AMBIEN [Concomitant]
  16. ROZEREM [Concomitant]

REACTIONS (13)
  - AGITATION [None]
  - ANXIETY [None]
  - AVERSION [None]
  - CONSTIPATION [None]
  - DEPRESSION [None]
  - DYSGEUSIA [None]
  - FRUSTRATION [None]
  - HEADACHE [None]
  - OSTEOPOROSIS [None]
  - SALIVARY HYPERSECRETION [None]
  - SELF ESTEEM DECREASED [None]
  - SLEEP DISORDER [None]
  - STRESS [None]
